FAERS Safety Report 20625182 (Version 19)
Quarter: 2023Q4

REPORT INFORMATION
  Report Type: Spontaneous
  Country: GB (occurrence: GB)
  Receive Date: 20220323
  Receipt Date: 20231031
  Transmission Date: 20240109
  Serious: Yes (Other)
  Sender: FDA-Public Use
  Company Number: None

PATIENT
  Age: 44 Year
  Sex: Male

DRUGS (16)
  1. METHYLPHENIDATE HYDROCHLORIDE [Suspect]
     Active Substance: METHYLPHENIDATE HYDROCHLORIDE
     Indication: Product used for unknown indication
     Dosage: UNK (PROLONGED-RELEASE TABLET, ABUSE)
     Route: 050
     Dates: start: 20170201, end: 20170201
  2. METHYLPHENIDATE HYDROCHLORIDE [Suspect]
     Active Substance: METHYLPHENIDATE HYDROCHLORIDE
     Dosage: UNK (PROLONGED-RELEASE TABLET) (ABUSE)
     Route: 050
     Dates: start: 20170201, end: 20170201
  3. METHYLPHENIDATE HYDROCHLORIDE [Suspect]
     Active Substance: METHYLPHENIDATE HYDROCHLORIDE
     Dosage: UNK (UNSPECIFIED, BETWEEN FEB-2017 AND MAY-2017) PROLONGED-RELEASE TABLET
     Route: 050
     Dates: start: 20170201, end: 20170501
  4. METHYLPHENIDATE HYDROCHLORIDE [Suspect]
     Active Substance: METHYLPHENIDATE HYDROCHLORIDE
     Dosage: UNK ABUSE (UNSPECIFIED, BETWEEN FEB-2017 AND MAY-2017) TABLET
     Route: 050
     Dates: start: 20170201, end: 20170501
  5. METHYLPHENIDATE HYDROCHLORIDE [Suspect]
     Active Substance: METHYLPHENIDATE HYDROCHLORIDE
     Dosage: UNK ABUSE (UNSPECIFIED, BETWEEN FEB-2017 AND MAY-2017) PROLONGED-RELEASE TABLET
     Route: 050
     Dates: start: 20170201, end: 20170501
  6. METHYLPHENIDATE HYDROCHLORIDE [Suspect]
     Active Substance: METHYLPHENIDATE HYDROCHLORIDE
     Dosage: UNK ABUSE (UNSPECIFIED, BETWEEN FEB-2017 AND MAY-2017)
     Route: 050
     Dates: start: 20170201, end: 20170501
  7. PREGABALIN [Suspect]
     Active Substance: PREGABALIN
     Indication: Product used for unknown indication
     Dosage: UNK (ABUSE)
     Route: 050
  8. PREGABALIN [Suspect]
     Active Substance: PREGABALIN
     Dosage: UNK, BETWEEN FEB-2017 AND MAY-2017, PROLONGED-RELEASE TABLET
     Route: 050
     Dates: start: 20170201, end: 20170201
  9. PREGABALIN [Suspect]
     Active Substance: PREGABALIN
     Dosage: UNK, DOSAGE FORM: UNSPECIFIED, BETWEEN FEB-2017 AND MAY-2017
     Route: 050
     Dates: start: 20170201, end: 20170501
  10. PREGABALIN [Suspect]
     Active Substance: PREGABALIN
     Dosage: UNK, DOSAGE FORM: UNSPECIFIED, BETWEEN FEB-2017 AND MAY-2017
     Route: 050
     Dates: start: 20170201, end: 20170501
  11. PREGABALIN [Suspect]
     Active Substance: PREGABALIN
     Dosage: UNK, BETWEEN FEB-2017 AND MAY-2017, PROLONGED-RELEASE TABLET
     Route: 050
     Dates: start: 20170201, end: 20170501
  12. PREGABALIN [Suspect]
     Active Substance: PREGABALIN
     Dosage: UNK, BETWEEN FEB-2017 AND MAY-2017, PROLONGED-RELEASE TABLET
     Route: 050
     Dates: start: 20170201, end: 20170501
  13. AMPHETAMINE [Concomitant]
     Active Substance: AMPHETAMINE
     Indication: Drug abuse
     Dosage: UNK
     Route: 065
  14. AMPHETAMINE [Concomitant]
     Active Substance: AMPHETAMINE
     Dosage: UNK
     Route: 050
  15. COCAINE [Concomitant]
     Active Substance: COCAINE
     Indication: Drug abuse
     Dosage: UNK
     Route: 065
  16. COCAINE [Concomitant]
     Active Substance: COCAINE
     Dosage: UNK
     Route: 050

REACTIONS (4)
  - Loss of consciousness [Recovered/Resolved]
  - Drug dependence [Unknown]
  - Drug abuse [Unknown]
  - Prescription drug used without a prescription [Unknown]
